FAERS Safety Report 5983961-9 (Version None)
Quarter: 2008Q4

REPORT INFORMATION
  Report Type: 
  Country: None (occurrence: None)
  Receive Date: 20081208
  Receipt Date: 20081125
  Transmission Date: 20090506
  Serious: Yes (Hospitalization)
  Sender: FDA-Public Use
  Company Number: JP-ROCHE-543480

PATIENT
  Sex: Male
  Weight: 54 kg

DRUGS (6)
  1. PEG-INTERFERON ALFA 2A (RO 25-8310) [Suspect]
     Indication: HEPATIC CIRRHOSIS
     Dosage: NOTE: 0UG-90UG OR 180 UG
     Route: 058
     Dates: start: 20060907, end: 20070808
  2. RIBAVIRIN [Suspect]
     Indication: HEPATIC CIRRHOSIS
     Dosage: DOSING FREQUENCY REPORTED AS '/DAY'.
     Route: 048
     Dates: start: 20060907, end: 20070808
  3. ZYLORIC [Concomitant]
     Route: 048
  4. SOLDEM [Concomitant]
     Dosage: SOLDEM 3A
     Route: 041
     Dates: start: 20070316, end: 20070316
  5. HYALEIN [Concomitant]
     Dosage: DOSE FORM: DROP (INTROCULAR) NOTE: 5-6 TIMES PER DAY
     Route: 031
     Dates: start: 20070208, end: 20070326
  6. LOXONIN [Concomitant]
     Dosage: DOSE FORM: TAPE
     Route: 061
     Dates: start: 20070307, end: 20070309

REACTIONS (1)
  - HEPATIC NEOPLASM MALIGNANT [None]
